FAERS Safety Report 14030444 (Version 2)
Quarter: 2018Q1

REPORT INFORMATION
  Report Type: Spontaneous
  Country: US (occurrence: US)
  Receive Date: 20171002
  Receipt Date: 20180228
  Transmission Date: 20180508
  Serious: Yes (Hospitalization)
  Sender: FDA-Public Use
  Company Number: US-ROCHE-1999349

PATIENT
  Age: 41 Year
  Sex: Male
  Weight: 116 kg

DRUGS (20)
  1. CELLCEPT [Suspect]
     Active Substance: MYCOPHENOLATE MOFETIL\MYCOPHENOLATE MOFETIL HYDROCHLORIDE
     Indication: PRODUCT USED FOR UNKNOWN INDICATION
     Route: 048
  2. TACROLIMUS. [Suspect]
     Active Substance: TACROLIMUS
     Indication: PROPHYLAXIS AGAINST TRANSPLANT REJECTION
     Dosage: 8 MG IN AM AND 7 MG IN PM
     Route: 048
     Dates: start: 20170125, end: 20170127
  3. TACROLIMUS. [Suspect]
     Active Substance: TACROLIMUS
     Route: 048
  4. PEPCID (UNITED STATES) [Concomitant]
     Dosage: 20 MG
     Route: 065
  5. VALCYTE [Suspect]
     Active Substance: VALGANCICLOVIR HYDROCHLORIDE
     Indication: PRODUCT USED FOR UNKNOWN INDICATION
     Route: 048
  6. TACROLIMUS. [Suspect]
     Active Substance: TACROLIMUS
     Route: 048
     Dates: start: 20170317, end: 20170327
  7. TACROLIMUS. [Suspect]
     Active Substance: TACROLIMUS
     Route: 048
     Dates: start: 20170127, end: 20170206
  8. TACROLIMUS. [Suspect]
     Active Substance: TACROLIMUS
     Route: 048
     Dates: start: 20170223, end: 20170317
  9. TACROLIMUS. [Suspect]
     Active Substance: TACROLIMUS
     Route: 048
     Dates: start: 20170809
  10. PENTAMIDINE [Concomitant]
     Active Substance: PENTAMIDINE
  11. COUMADIN [Concomitant]
     Active Substance: WARFARIN SODIUM
  12. MIRALAX [Concomitant]
     Active Substance: POLYETHYLENE GLYCOL 3350
  13. DELTASONE (PREDNISONE) [Concomitant]
  14. TACROLIMUS. [Suspect]
     Active Substance: TACROLIMUS
     Route: 048
     Dates: start: 20170327, end: 20170808
  15. NORVASC [Concomitant]
     Active Substance: AMLODIPINE BESYLATE
     Dosage: 5 MG
     Route: 065
  16. SENOKOT [Concomitant]
     Active Substance: SENNOSIDES
  17. CELLCEPT [Suspect]
     Active Substance: MYCOPHENOLATE MOFETIL\MYCOPHENOLATE MOFETIL HYDROCHLORIDE
     Route: 048
  18. TACROLIMUS. [Suspect]
     Active Substance: TACROLIMUS
     Dosage: 8 MG IN AM AND 7 MG IN PM
     Route: 048
     Dates: start: 20170206, end: 20170223
  19. DOCUSATE SODIUM. [Concomitant]
     Active Substance: DOCUSATE SODIUM
  20. TACROLIMUS. [Suspect]
     Active Substance: TACROLIMUS
     Route: 048

REACTIONS (5)
  - Perinephric collection [Recovered/Resolved]
  - Perirectal abscess [Recovered/Resolved]
  - Abdominal pain [Recovered/Resolved]
  - Febrile neutropenia [Recovered/Resolved with Sequelae]
  - Anal abscess [Recovering/Resolving]

NARRATIVE: CASE EVENT DATE: 20170309
